FAERS Safety Report 7746265-X (Version None)
Quarter: 2011Q3

REPORT INFORMATION
  Report Type: 
  Country: None (occurrence: None)
  Receive Date: 20110825
  Receipt Date: 20110602
  Transmission Date: 20111222
  Serious: No
  Sender: FDA-Public Use
  Company Number: 329339

PATIENT
  Age: 52 Year
  Sex: Female
  Weight: 107.5 kg

DRUGS (3)
  1. VICTOZA [Suspect]
     Indication: GLUCOSE TOLERANCE IMPAIRED
     Dosage: 1.8 MG/ML, QD, SUBCUTANEOUS
     Route: 058
     Dates: start: 20101223, end: 20110531
  2. VICTOZA [Suspect]
     Indication: TYPE 2 DIABETES MELLITUS
     Dosage: 1.8 MG/ML, QD, SUBCUTANEOUS
     Route: 058
     Dates: start: 20101223, end: 20110531
  3. FLUOXETINE HYDROCHLORIDE [Concomitant]

REACTIONS (5)
  - ABDOMINAL PAIN [None]
  - BLOOD AMYLASE INCREASED [None]
  - NAUSEA [None]
  - LIPASE INCREASED [None]
  - VOMITING [None]
